FAERS Safety Report 8918418 (Version 1)
Quarter: 2012Q4

REPORT INFORMATION
  Report Type: 
  Country: US (occurrence: US)
  Receive Date: 20121120
  Receipt Date: 20121120
  Transmission Date: 20130627
  Serious: No
  Sender: FDA-Public Use
  Company Number: US-ASTRAZENECA-2012SE17474

PATIENT
  Age: 56 Year
  Sex: Female

DRUGS (6)
  1. NEXIUM [Suspect]
     Route: 048
  2. PRILOSEC [Suspect]
     Route: 048
  3. PRILOSEC OTC [Suspect]
     Route: 048
  4. PREVACID [Concomitant]
  5. TAGAMENT [Concomitant]
  6. ZANTAC [Concomitant]

REACTIONS (5)
  - Aphagia [Unknown]
  - Dyspepsia [Unknown]
  - Nausea [Unknown]
  - Drug dose omission [Unknown]
  - Drug ineffective [Unknown]
